FAERS Safety Report 22693226 (Version 2)
Quarter: 2024Q3

REPORT INFORMATION
  Report Type: Spontaneous
  Country: US (occurrence: US)
  Receive Date: 20230711
  Receipt Date: 20240722
  Transmission Date: 20241016
  Serious: No
  Sender: ASTELLAS
  Company Number: US-ASTELLAS-2022US045086

PATIENT
  Sex: Male

DRUGS (3)
  1. MYRBETRIQ [Suspect]
     Active Substance: MIRABEGRON
     Indication: Hypertonic bladder
     Route: 065
  2. TROSPIUM [Suspect]
     Active Substance: TROSPIUM
     Indication: Product used for unknown indication
     Dosage: UNK UNK, UNKNOWN FREQ.
     Route: 065
  3. CIALIS [Concomitant]
     Active Substance: TADALAFIL
     Indication: Urinary incontinence
     Dosage: UNK UNK, UNKNOWN FREQ.
     Route: 065

REACTIONS (7)
  - Pain [Unknown]
  - Blood glucose increased [Unknown]
  - Back pain [Unknown]
  - Dry mouth [Unknown]
  - Blood pressure increased [Unknown]
  - Headache [Unknown]
  - Constipation [Unknown]
